FAERS Safety Report 16476117 (Version 2)
Quarter: 2019Q4

REPORT INFORMATION
  Report Type: Spontaneous
  Country: US (occurrence: US)
  Receive Date: 20190625
  Receipt Date: 20191013
  Transmission Date: 20200122
  Serious: Yes (Other)
  Sender: FDA-Public Use
  Company Number: US-PIRAMAL ENTERPRISES LIMITED-2019-PEL-000194

PATIENT

DRUGS (2)
  1. GABLOFEN [Suspect]
     Active Substance: BACLOFEN
     Dosage: 299.43 MICROGRAM PER DAY
     Route: 037
  2. GABLOFEN [Suspect]
     Active Substance: BACLOFEN
     Indication: MUSCLE SPASTICITY
     Dosage: 549.69 MICROGRAM PER DAY
     Route: 037

REACTIONS (4)
  - Product administration interrupted [Not Recovered/Not Resolved]
  - Device kink [Recovered/Resolved]
  - Arachnoiditis [Not Recovered/Not Resolved]
  - Drug ineffective [Recovered/Resolved]
